FAERS Safety Report 4796469-3 (Version None)
Quarter: 2005Q3

REPORT INFORMATION
  Report Type: 
  Country: None (occurrence: None)
  Receive Date: 20050916
  Receipt Date: 20041208
  Transmission Date: 20060218
  Serious: Yes (Other)
  Sender: FDA-Public Use
  Company Number: US-JNJFOC-20040900304

PATIENT
  Age: 45 Year
  Sex: Male

DRUGS (1)
  1. TOPAMAX [Suspect]
     Indication: PAIN MANAGEMENT
     Dosage: TOPIRAMATE DOSE (UNSPECIFIED) WAS DOUBLED ON 06-AUG-O4
     Dates: start: 20040806, end: 20040807

REACTIONS (1)
  - ANGLE CLOSURE GLAUCOMA [None]
